FAERS Safety Report 8550528-8 (Version None)
Quarter: 2012Q3

REPORT INFORMATION
  Report Type: 
  Country: None (occurrence: None)
  Receive Date: 20120730
  Receipt Date: 20120720
  Transmission Date: 20120928
  Serious: Yes (Hospitalization)
  Sender: FDA-Public Use
  Company Number: US-ASTRAZENECA-2010SE19676

PATIENT
  Age: 24 Year
  Sex: Female

DRUGS (49)
  1. ALBUTEROL [Concomitant]
     Indication: WHEEZING
     Dosage: 90MCG/ INH, 4 TIMES A DAY AS NEEDED
     Route: 055
  2. EFFEXOR XR [Concomitant]
     Route: 048
     Dates: start: 20090312
  3. LANTUS [Concomitant]
     Indication: DIABETES MELLITUS
     Dosage: 15 UNITS EVERY MORNING
     Route: 058
  4. LIDODERM [Concomitant]
     Indication: ARTHRALGIA
     Dosage: 1 PATCH DAILY AS NEEDED
     Route: 061
  5. PREDNISONE [Concomitant]
     Route: 048
     Dates: start: 20090312
  6. SYNTHROID [Concomitant]
     Route: 048
  7. YASMIN [Concomitant]
     Route: 048
  8. SEROQUEL [Suspect]
     Route: 048
     Dates: start: 20090312
  9. AMBIEN [Concomitant]
     Route: 048
     Dates: start: 20090312
  10. IMURAN [Concomitant]
  11. METHYLPHENIDATE [Concomitant]
     Route: 048
  12. ZOFRAN [Concomitant]
     Route: 048
  13. ZOFRAN [Concomitant]
     Route: 048
  14. LORATADINE [Concomitant]
     Route: 048
  15. VANCOMYCIN [Concomitant]
     Route: 048
     Dates: start: 20090313
  16. ELMIRON [Concomitant]
     Route: 048
     Dates: start: 20090312
  17. MELATONIN [Concomitant]
     Route: 048
  18. PHENAZOPYRIDINE HCL TAB [Concomitant]
     Route: 048
  19. SUBOXONE [Concomitant]
     Dosage: 8MG-2MG DISINTEGRATING THREE TIMES A DAY
     Route: 060
     Dates: start: 20090312
  20. FOLIC ACID [Concomitant]
     Route: 048
     Dates: start: 20090312
  21. IPRATROPIUM BROMIDE [Concomitant]
     Indication: WHEEZING
     Dosage: 18 MCG/ INH AS NEEDED
     Route: 055
  22. MESTINON [Concomitant]
     Route: 048
  23. MESTINON [Concomitant]
     Route: 048
  24. NOVOLOG [Concomitant]
     Indication: DIABETES MELLITUS
     Dosage: ACCORDING TO BLOOD SUGAR
     Route: 058
  25. PREDNISONE [Concomitant]
     Route: 048
  26. TAGAMET [Concomitant]
     Route: 048
  27. ZOFRAN [Concomitant]
     Indication: NAUSEA
     Route: 048
     Dates: start: 20090312
  28. ZOFRAN [Concomitant]
     Indication: VOMITING
     Route: 048
     Dates: start: 20090312
  29. BENADRYL [Concomitant]
     Route: 048
     Dates: start: 20090312
  30. VITAMIN D [Concomitant]
     Route: 048
     Dates: start: 20090313
  31. ACIPHEX [Concomitant]
     Route: 048
  32. HYDROCHLOROTHIAZIDE [Concomitant]
     Route: 048
     Dates: start: 20090312
  33. LANSOPRAZOLE [Concomitant]
     Route: 048
  34. NEXIUM [Suspect]
     Route: 048
     Dates: start: 20090312
  35. METFORMIN HYDROCHLORIDE [Suspect]
     Indication: DIABETES MELLITUS
     Route: 048
     Dates: start: 20090312
  36. CYANOCOBALAMIN [Concomitant]
     Route: 048
  37. GEMFIBROZIL [Concomitant]
     Route: 048
  38. DROSPIRENONE AND ETHINYL ESTRADIOL [Concomitant]
     Route: 048
  39. TAGAMET [Concomitant]
     Indication: GASTROOESOPHAGEAL REFLUX DISEASE
     Route: 048
  40. XOPENEX HFA [Concomitant]
     Dates: start: 20090312
  41. SYMBICORT [Suspect]
     Dosage: 80 MCG/4.5 MCG, TWICE A DAY
     Route: 055
     Dates: start: 20090312
  42. DILTIAZEM [Concomitant]
     Route: 048
     Dates: start: 20090312
  43. TOPAMAX [Concomitant]
     Route: 048
  44. PRILOSEC [Suspect]
     Route: 048
  45. ACTONEL [Concomitant]
     Route: 048
  46. IMURAN [Concomitant]
  47. KCL 20 [Concomitant]
  48. PHENAZOPYRIDINE HCL TAB [Concomitant]
     Indication: URINARY TRACT DISORDER
     Route: 048
  49. YASMIN [Concomitant]
     Route: 048

REACTIONS (7)
  - GASTROOESOPHAGEAL REFLUX DISEASE [None]
  - DIABETES MELLITUS [None]
  - DRUG INEFFECTIVE [None]
  - LACTIC ACIDOSIS [None]
  - MOUTH ULCERATION [None]
  - MALAISE [None]
  - INTENTIONAL DRUG MISUSE [None]
